FAERS Safety Report 9376435 (Version 3)
Quarter: 2014Q1

REPORT INFORMATION
  Report Type: Spontaneous
  Country: DE (occurrence: DE)
  Receive Date: 20130701
  Receipt Date: 20140121
  Transmission Date: 20141002
  Serious: Yes (Other)
  Sender: FDA-Public Use
  Company Number: DE-JNJFOC-20130616723

PATIENT
  Age: 67 Year
  Sex: Female

DRUGS (5)
  1. XARELTO [Suspect]
     Indication: CEREBROVASCULAR ACCIDENT PROPHYLAXIS
     Route: 048
     Dates: start: 20130404, end: 20130604
  2. XARELTO [Suspect]
     Indication: ATRIAL FIBRILLATION
     Route: 048
     Dates: start: 20130404, end: 20130604
  3. RAMIPRIL [Concomitant]
     Route: 065
  4. CORVATON [Concomitant]
     Route: 065
  5. INSUMAN BASAL [Concomitant]
     Route: 065

REACTIONS (1)
  - Transient ischaemic attack [Recovered/Resolved]
